FAERS Safety Report 7989041-5 (Version None)
Quarter: 2011Q4

REPORT INFORMATION
  Report Type: 
  Country: None (occurrence: None)
  Receive Date: 20111219
  Receipt Date: 20111215
  Transmission Date: 20120403
  Serious: Yes (Hospitalization)
  Sender: FDA-Public Use
  Company Number: IE-AMGEN-IRLSP2011051579

PATIENT
  Age: 63 Year
  Sex: Female

DRUGS (8)
  1. CYCLIZINE [Concomitant]
     Indication: PRODUCT USED FOR UNKNOWN INDICATION
  2. DOMPERIDONE [Concomitant]
     Indication: PRODUCT USED FOR UNKNOWN INDICATION
  3. DEXAMETHASONE [Concomitant]
     Indication: PRODUCT USED FOR UNKNOWN INDICATION
  4. APREPITANT [Concomitant]
     Indication: PRODUCT USED FOR UNKNOWN INDICATION
  5. NEULASTA [Suspect]
     Indication: CHEMOTHERAPY
     Dosage: 6 MG, 2 TIMES/WK
     Route: 058
     Dates: start: 20110920
  6. TRAMADOL HCL [Concomitant]
     Indication: PRODUCT USED FOR UNKNOWN INDICATION
  7. LANSOPRAZOLE [Concomitant]
     Indication: PRODUCT USED FOR UNKNOWN INDICATION
  8. ANTINEOPLASTIC AGENTS [Concomitant]

REACTIONS (3)
  - DEHYDRATION [None]
  - ARTHRALGIA [None]
  - VOMITING [None]
